FAERS Safety Report 8746369 (Version 3)
Quarter: 2012Q4

REPORT INFORMATION
  Report Type: 
  Country: US (occurrence: US)
  Receive Date: 20120827
  Receipt Date: 20121015
  Transmission Date: 20130627
  Serious: Yes (Hospitalization)
  Sender: FDA-Public Use
  Company Number: US-UCBSA-063998

PATIENT
  Age: 14 Year
  Sex: Male

DRUGS (3)
  1. CIMZIA [Suspect]
     Indication: CROHN^S DISEASE
     Dates: start: 20120509, end: 2012
  2. CIMZIA [Suspect]
     Indication: CROHN^S DISEASE
     Dates: start: 2012
  3. ENTOCORT [Concomitant]

REACTIONS (3)
  - Anal abscess [Recovering/Resolving]
  - Fistula [Not Recovered/Not Resolved]
  - Pain [Not Recovered/Not Resolved]
